FAERS Safety Report 15994649 (Version 2)
Quarter: 2019Q2

REPORT INFORMATION
  Report Type: Spontaneous
  Country: IE (occurrence: IE)
  Receive Date: 20190222
  Receipt Date: 20190416
  Transmission Date: 20190711
  Serious: No
  Sender: FDA-Public Use
  Company Number: IE-BIOGEN-2019BI00700632

PATIENT
  Sex: Male

DRUGS (1)
  1. TYSABRI [Suspect]
     Active Substance: NATALIZUMAB
     Indication: MULTIPLE SCLEROSIS
     Route: 050

REACTIONS (4)
  - Nuclear magnetic resonance imaging abnormal [Unknown]
  - Multiple sclerosis [Unknown]
  - Primary progressive multiple sclerosis [Unknown]
  - Drug ineffective [Unknown]
